FAERS Safety Report 7370279-5 (Version None)
Quarter: 2011Q1

REPORT INFORMATION
  Report Type: 
  Country: None (occurrence: None)
  Receive Date: 20110323
  Receipt Date: 20110317
  Transmission Date: 20110831
  Serious: Yes (Other)
  Sender: FDA-Public Use
  Company Number: US-US-EMD SERONO, INC.-7034512

PATIENT
  Sex: Female

DRUGS (3)
  1. REBIF [Suspect]
     Route: 058
     Dates: start: 20110110
  2. REBIF [Suspect]
     Indication: PRODUCT USED FOR UNKNOWN INDICATION
     Route: 058
     Dates: start: 20101108, end: 20101201
  3. REBIF [Suspect]
     Route: 058
     Dates: start: 20101201, end: 20110110

REACTIONS (8)
  - DRY SKIN [None]
  - OOPHORECTOMY [None]
  - INSOMNIA [None]
  - HOT FLUSH [None]
  - INJECTION SITE PAIN [None]
  - MUSCULAR WEAKNESS [None]
  - MIGRAINE [None]
  - FEELING HOT [None]
